FAERS Safety Report 12928778 (Version 3)
Quarter: 2017Q1

REPORT INFORMATION
  Report Type: Report from Study
  Country: US (occurrence: US)
  Receive Date: 20161110
  Receipt Date: 20170109
  Transmission Date: 20170428
  Serious: Yes (Death, Hospitalization, Other)
  Sender: FDA-Public Use
  Company Number: US-BRISTOL-MYERS SQUIBB COMPANY-BMS-2016-086903

PATIENT
  Sex: Female

DRUGS (1)
  1. NIVOLUMAB [Suspect]
     Active Substance: NIVOLUMAB
     Indication: LUNG NEOPLASM MALIGNANT
     Dosage: UNK
     Route: 042

REACTIONS (21)
  - Dysgeusia [Unknown]
  - Weight increased [Unknown]
  - Pain in extremity [Unknown]
  - Pneumonia [Unknown]
  - Productive cough [Unknown]
  - Abdominal pain [Unknown]
  - Chronic obstructive pulmonary disease [Fatal]
  - Dizziness [Unknown]
  - Asthma [Fatal]
  - Diarrhoea [Unknown]
  - Visual impairment [Unknown]
  - Memory impairment [Unknown]
  - Fatigue [Unknown]
  - Back pain [Unknown]
  - Dyspnoea [Unknown]
  - Brain neoplasm [Unknown]
  - Acrochordon [Unknown]
  - Rash [Recovered/Resolved]
  - Pain [Unknown]
  - Chest pain [Unknown]
  - Irritability [Unknown]
